FAERS Safety Report 9778179 (Version 1)
Quarter: 2013Q4

REPORT INFORMATION
  Report Type: Spontaneous
  Country: FR (occurrence: FR)
  Receive Date: 20131223
  Receipt Date: 20131223
  Transmission Date: 20140711
  Serious: Yes (Other)
  Sender: FDA-Public Use
  Company Number: FR-JNJFOC-20131211923

PATIENT
  Age: 60 Year
  Sex: Male

DRUGS (4)
  1. XARELTO [Suspect]
     Indication: PRODUCT USED FOR UNKNOWN INDICATION
     Route: 048
  2. AMLOR [Concomitant]
     Route: 065
  3. IKOREL [Concomitant]
     Route: 065
  4. LASILIX [Concomitant]
     Route: 065

REACTIONS (2)
  - Renin increased [Unknown]
  - Blood aldosterone increased [Unknown]
